FAERS Safety Report 6177956-2 (Version None)
Quarter: 2009Q2

REPORT INFORMATION
  Report Type: 
  Country: None (occurrence: None)
  Receive Date: 20090504
  Receipt Date: 20090422
  Transmission Date: 20091009
  Serious: Yes (Other)
  Sender: FDA-Public Use
  Company Number: NL-MERCK-0904NLD00026

PATIENT
  Age: 71 Year
  Sex: Female

DRUGS (9)
  1. FOSAMAX [Suspect]
     Route: 048
     Dates: start: 20080315, end: 20080513
  2. SOTALOL HYDROCHLORIDE [Concomitant]
     Route: 048
  3. CALCIUM CARBONATE [Concomitant]
     Route: 048
  4. LOSARTAN POTASSIUM [Concomitant]
     Route: 048
  5. RISEDRONATE SODIUM [Concomitant]
     Route: 048
     Dates: start: 20080601, end: 20080602
  6. NIFEDIPINE [Concomitant]
     Route: 048
  7. PANTOPRAZOLE SODIUM [Concomitant]
     Route: 048
  8. CARBASPIRIN CALCIUM [Concomitant]
     Route: 048
  9. IBANDRONATE SODIUM [Concomitant]
     Route: 048
     Dates: start: 20080608

REACTIONS (2)
  - CHEST PAIN [None]
  - PALPITATIONS [None]
